FAERS Safety Report 7512112-4 (Version None)
Quarter: 2011Q2

REPORT INFORMATION
  Report Type: 
  Country: None (occurrence: None)
  Receive Date: 20110531
  Receipt Date: 20110512
  Transmission Date: 20111010
  Serious: Yes (Death, Hospitalization, Other)
  Sender: FDA-Public Use
  Company Number: US-AMGEN-US378784

PATIENT
  Age: 82 Year
  Sex: Male

DRUGS (18)
  1. ALPRAZOLAM [Concomitant]
     Dosage: 0.25 MG, UNK
     Route: 048
  2. LIPITOR [Concomitant]
     Dosage: 10 MG, QD
     Route: 048
  3. IMDUR [Concomitant]
     Route: 048
  4. LASIX [Concomitant]
     Dosage: 20 MG, QD
     Route: 048
  5. RESTORIL [Concomitant]
     Dosage: 30 MG, UNK
     Route: 048
  6. RAMIPRIL [Concomitant]
     Dosage: 2.5 MG, QD
     Route: 048
  7. CARAFATE [Concomitant]
     Dosage: 1 G, Q6H
     Route: 048
  8. NPLATE [Suspect]
     Dosage: 600 A?G, QWK
     Route: 058
     Dates: end: 20100628
  9. PLAVIX [Concomitant]
     Dosage: 75 MG, QD
     Route: 048
  10. FERROUS SULFATE TAB [Concomitant]
     Dosage: 152 MG, BID
     Route: 048
  11. NITRO-DUR [Concomitant]
     Dosage: 0.4 MG, QD
     Route: 062
  12. NITROSTAT [Concomitant]
     Dosage: 0.4 MG, UNK
  13. NPLATE [Suspect]
     Indication: IDIOPATHIC THROMBOCYTOPENIC PURPURA
     Dosage: 630 A?G, QWK
     Route: 058
     Dates: start: 20090831, end: 20100101
  14. CARVEDILOL [Concomitant]
     Dosage: 3.125 MG, BID
     Route: 048
  15. ASPIRIN [Concomitant]
     Dosage: 325 MG, QD
     Route: 048
  16. LIDRODERM [Concomitant]
     Dosage: UNK UNK, QD
     Route: 062
  17. TEMAZEPAM [Concomitant]
     Dosage: 30 MG, UNK
     Route: 048
  18. PREDNISONE [Concomitant]
     Dosage: 75 MG, QD
     Route: 048

REACTIONS (13)
  - SEPTIC SHOCK [None]
  - STAPHYLOCOCCAL SEPSIS [None]
  - PETECHIAE [None]
  - THROMBOCYTOPENIA [None]
  - RESPIRATORY FAILURE [None]
  - ELECTROCARDIOGRAM QT SHORTENED [None]
  - THERAPEUTIC RESPONSE DECREASED [None]
  - CEREBROVASCULAR ACCIDENT [None]
  - CONDUCTION DISORDER [None]
  - STOMATITIS [None]
  - ANGINA PECTORIS [None]
  - ANGIOPLASTY [None]
  - ATRIAL TACHYCARDIA [None]
